FAERS Safety Report 5632115-4 (Version None)
Quarter: 2008Q1

REPORT INFORMATION
  Report Type: 
  Country: None (occurrence: None)
  Receive Date: 20080220
  Receipt Date: 20080211
  Transmission Date: 20080703
  Serious: Yes (Other)
  Sender: FDA-Public Use
  Company Number: B0508843A

PATIENT

DRUGS (2)
  1. AVODART [Suspect]
     Indication: DRUG USE FOR UNKNOWN INDICATION
  2. XATRAL [Concomitant]

REACTIONS (5)
  - DYSURIA [None]
  - HYPERAESTHESIA [None]
  - MICTURITION URGENCY [None]
  - SLEEP DISORDER [None]
  - URINARY RETENTION [None]
